FAERS Safety Report 5400525-6 (Version None)
Quarter: 2007Q3

REPORT INFORMATION
  Report Type: 
  Country: None (occurrence: None)
  Receive Date: 20070730
  Receipt Date: 20070725
  Transmission Date: 20080115
  Serious: Yes (Death, Hospitalization, Other)
  Sender: FDA-Public Use
  Company Number: HQWYE219025JUL07

PATIENT
  Age: 72 Year
  Sex: Male

DRUGS (3)
  1. CORDARONE [Suspect]
     Indication: TACHYCARDIA PAROXYSMAL
     Route: 048
     Dates: start: 20060101, end: 20060101
  2. CORDARONE [Suspect]
     Route: 048
     Dates: start: 20061201, end: 20070101
  3. ISOPTIN [Concomitant]
     Dosage: UNSPECIFIED
     Route: 048

REACTIONS (2)
  - INTERSTITIAL LUNG DISEASE [None]
  - NOSOCOMIAL INFECTION [None]
